FAERS Safety Report 12998697 (Version 3)
Quarter: 2016Q4

REPORT INFORMATION
  Report Type: Spontaneous
  Country: FR (occurrence: FR)
  Receive Date: 20161205
  Receipt Date: 20161227
  Transmission Date: 20170207
  Serious: Yes (Other)
  Sender: FDA-Public Use
  Company Number: FR-LEO PHARMA-244971

PATIENT
  Age: 69 Year
  Sex: Female
  Weight: 50 kg

DRUGS (2)
  1. PICATO [Suspect]
     Active Substance: INGENOL MEBUTATE
     Indication: ACTINIC KERATOSIS
     Route: 061
     Dates: start: 20161119, end: 20161121
  2. BETAMETHASONE (DIPROSALIC) [Concomitant]
     Indication: PARAKERATOSIS
     Route: 061
     Dates: start: 20161119

REACTIONS (6)
  - Paraesthesia [Not Recovered/Not Resolved]
  - Eyelid oedema [Recovered/Resolved]
  - Rash [Recovering/Resolving]
  - Lip oedema [Recovered/Resolved]
  - Pruritus [Not Recovered/Not Resolved]
  - Dry mouth [Not Recovered/Not Resolved]

NARRATIVE: CASE EVENT DATE: 201611
